FAERS Safety Report 9390339 (Version 4)
Quarter: 2013Q4

REPORT INFORMATION
  Report Type: Spontaneous
  Country: GB (occurrence: GB)
  Receive Date: 20130709
  Receipt Date: 20131118
  Transmission Date: 20140711
  Serious: Yes (Death, Other)
  Sender: FDA-Public Use
  Company Number: GB-ROCHE-1245560

PATIENT
  Age: 16 Year
  Sex: Male

DRUGS (2)
  1. ROACCUTANE [Suspect]
     Indication: ACNE
     Dosage: 3 TABLET
     Route: 065
  2. ROACCUTANE [Suspect]
     Dosage: 1 TABLET
     Route: 065

REACTIONS (6)
  - Completed suicide [Fatal]
  - Negative thoughts [Unknown]
  - Mood swings [Unknown]
  - Depressed mood [Unknown]
  - Malaise [Unknown]
  - Social avoidant behaviour [Unknown]
